FAERS Safety Report 5800097-8 (Version None)
Quarter: 2008Q3

REPORT INFORMATION
  Report Type: 
  Country: None (occurrence: None)
  Receive Date: 20080703
  Receipt Date: 20080623
  Transmission Date: 20090109
  Serious: Yes (Death)
  Sender: FDA-Public Use
  Company Number: US-ROCHE-569284

PATIENT
  Sex: Female

DRUGS (1)
  1. MYCOPHENOLATE MOFETIL [Suspect]
     Indication: DRUG USE FOR UNKNOWN INDICATION
     Dosage: ON HOLD FOR A TOTAL OF 20 DAYS.
     Route: 065
     Dates: start: 20080101, end: 20080318

REACTIONS (2)
  - LARGE INTESTINE PERFORATION [None]
  - RESPIRATORY FAILURE [None]
